FAERS Safety Report 4807246-9 (Version None)
Quarter: 2005Q4

REPORT INFORMATION
  Report Type: 
  Country: None (occurrence: None)
  Receive Date: 20051020
  Receipt Date: 20051020
  Transmission Date: 20060501
  Serious: No
  Sender: FDA-Public Use
  Company Number: None

PATIENT
  Age: 16 Year
  Sex: Female
  Weight: 44.9061 kg

DRUGS (2)
  1. LAMICTAL [Suspect]
     Indication: BIPOLAR DISORDER
     Dosage: 25 MG PO QHS
     Route: 048
  2. LITHIUM CARBONATE [Concomitant]

REACTIONS (3)
  - PETECHIAE [None]
  - RASH ERYTHEMATOUS [None]
  - RASH PRURITIC [None]
